FAERS Safety Report 18553158 (Version 1)
Quarter: 2020Q4

REPORT INFORMATION
  Report Type: Spontaneous
  Country: BE (occurrence: BE)
  Receive Date: 20201127
  Receipt Date: 20201127
  Transmission Date: 20210114
  Serious: Yes (Other)
  Sender: FDA-Public Use
  Company Number: BE-TEVA-2020-BE-1834283

PATIENT
  Age: 66 Year
  Sex: Female
  Weight: 70 kg

DRUGS (7)
  1. D-PEARLS (VITAMIN D3) [Concomitant]
     Indication: OSTEOPOROSIS PROPHYLAXIS
     Route: 048
     Dates: start: 2007
  2. ESTROFEM [Concomitant]
     Indication: MENOPAUSE
     Route: 048
     Dates: start: 2011
  3. COPAXONE [Suspect]
     Active Substance: GLATIRAMER ACETATE
     Indication: MULTIPLE SCLEROSIS
     Route: 058
     Dates: start: 202003
  4. CALCIUM CARBONATE. [Concomitant]
     Active Substance: CALCIUM CARBONATE
     Indication: OSTEOPOROSIS PROPHYLAXIS
     Route: 048
     Dates: start: 2011
  5. LYRICA [Concomitant]
     Active Substance: PREGABALIN
     Indication: NEURALGIA
     Dosage: 150 MILLIGRAM DAILY; 75 MG (2 DF DAILY) BY ORAL ROUTE SINCE 2010
     Route: 048
     Dates: start: 2010
  6. L-THYROXINE 125 MCG [Concomitant]
     Indication: HYPOTHYROIDISM
     Dosage: STARTED BEFORE 2007
     Route: 048
  7. AMINOPYRIDINE 5 MG [Concomitant]
     Indication: INTERMITTENT CLAUDICATION
     Dosage: 10 MILLIGRAM DAILY; (2 DF DAILY)
     Route: 048
     Dates: start: 2009

REACTIONS (3)
  - Neutropenia [Not Recovered/Not Resolved]
  - White blood cell count decreased [Not Recovered/Not Resolved]
  - Eosinophilia [Not Recovered/Not Resolved]

NARRATIVE: CASE EVENT DATE: 20200427
